FAERS Safety Report 25880915 (Version 3)
Quarter: 2025Q4

REPORT INFORMATION
  Report Type: Report from Study
  Country: US (occurrence: US)
  Receive Date: 20251004
  Receipt Date: 20251208
  Transmission Date: 20260118
  Serious: Yes (Other)
  Sender: NOVARTIS
  Company Number: US-002147023-NVSC2025US152212

PATIENT
  Age: 57 Year
  Sex: Male
  Weight: 131.54 kg

DRUGS (3)
  1. COSENTYX [Suspect]
     Active Substance: SECUKINUMAB
     Indication: Rheumatoid arthritis
     Dosage: 150 ML, QMO
     Route: 058
     Dates: start: 202403
  2. COSENTYX [Suspect]
     Active Substance: SECUKINUMAB
     Dosage: 300-350 ML, QMO
     Route: 058
  3. COSENTYX [Suspect]
     Active Substance: SECUKINUMAB
     Dosage: 300 MG, QMO
     Route: 058
     Dates: start: 20240530

REACTIONS (7)
  - Therapeutic response shortened [Unknown]
  - Arthralgia [Unknown]
  - Skin plaque [Unknown]
  - Blood test abnormal [Unknown]
  - Product use in unapproved indication [Unknown]
  - Incorrect dose administered [Unknown]
  - Off label use [Unknown]

NARRATIVE: CASE EVENT DATE: 20250407
